FAERS Safety Report 9674597 (Version 1)
Quarter: 2013Q4

REPORT INFORMATION
  Report Type: Spontaneous
  Country: US (occurrence: None)
  Receive Date: 20131106
  Receipt Date: 20131106
  Transmission Date: 20140711
  Serious: No
  Sender: FDA-Public Use
  Company Number: None

PATIENT
  Age: 57 Year
  Sex: Male
  Weight: 86.18 kg

DRUGS (9)
  1. MERCAPTOPURINE [Suspect]
     Indication: CROHN^S DISEASE
     Route: 048
     Dates: start: 20120401
  2. CELEBREX [Concomitant]
  3. LISINOPRIL [Concomitant]
  4. SIMVASTATIN [Concomitant]
  5. RANITIDINE [Concomitant]
  6. VITAMIN C [Concomitant]
  7. CENTRUM SILVER [Concomitant]
  8. BENADRYL [Concomitant]
  9. AFRIN [Concomitant]

REACTIONS (3)
  - Diarrhoea [None]
  - Constipation [None]
  - Flatulence [None]
